FAERS Safety Report 9285726 (Version 6)
Quarter: 2014Q1

REPORT INFORMATION
  Report Type: Report from Study
  Country: IT (occurrence: IT)
  Receive Date: 20130513
  Receipt Date: 20140207
  Transmission Date: 20141002
  Serious: Yes (Death, Life-Threatening, Hospitalization)
  Sender: FDA-Public Use
  Company Number: IT-PFIZER INC-2013144732

PATIENT
  Age: 57 Year
  Sex: Female
  Weight: 58 kg

DRUGS (4)
  1. CRIZOTINIB [Suspect]
     Indication: NON-SMALL CELL LUNG CANCER METASTATIC
     Dosage: 200 MG, 1X/DAY
     Route: 048
     Dates: start: 20130423, end: 20130506
  2. ESOPRAL [Concomitant]
     Indication: PROPHYLAXIS
     Dosage: 20 MG, 1X/DAY
     Route: 048
     Dates: start: 20130423
  3. PALEXIA [Concomitant]
     Indication: ANALGESIC THERAPY
     Dosage: 50 MG, 2X/DAY
     Route: 048
     Dates: start: 20130423
  4. ORUDIS [Concomitant]
     Route: 048

REACTIONS (10)
  - Acute respiratory failure [Fatal]
  - Interstitial lung disease [Not Recovered/Not Resolved]
  - Dyspnoea [Recovered/Resolved]
  - Asthenia [Not Recovered/Not Resolved]
  - Muscular weakness [Not Recovered/Not Resolved]
  - Ecchymosis [Not Recovered/Not Resolved]
  - Stomatitis [Not Recovered/Not Resolved]
  - Mood altered [Recovered/Resolved]
  - Muscle hypertrophy [Not Recovered/Not Resolved]
  - Aspergillus infection [Fatal]
